FAERS Safety Report 6024485-2 (Version None)
Quarter: 2008Q4

REPORT INFORMATION
  Report Type: 
  Country: None (occurrence: None)
  Receive Date: 20081231
  Receipt Date: 20080909
  Transmission Date: 20090506
  Serious: No
  Sender: FDA-Public Use
  Company Number: US-BRISTOL-MYERS SQUIBB COMPANY-14329254

PATIENT
  Age: 57 Year
  Sex: Female
  Weight: 109 kg

DRUGS (9)
  1. ORENCIA [Suspect]
     Indication: RHEUMATOID ARTHRITIS
     Dates: start: 20080101
  2. KLONOPIN [Concomitant]
  3. SYNTHROID [Concomitant]
  4. EFFEXOR XR [Concomitant]
  5. WELLBUTRIN XL [Concomitant]
  6. RISPERDAL [Concomitant]
  7. ALLEGRA [Concomitant]
  8. FOLIC ACID [Concomitant]
  9. DIOVAN HCT [Concomitant]

REACTIONS (3)
  - CHILLS [None]
  - FATIGUE [None]
  - RASH [None]
